FAERS Safety Report 23466289 (Version 6)
Quarter: 2024Q4

REPORT INFORMATION
  Report Type: Spontaneous
  Country: US (occurrence: US)
  Receive Date: 20240201
  Receipt Date: 20241021
  Transmission Date: 20250115
  Serious: No
  Sender: PFIZER
  Company Number: US-PFIZER INC-202400027419

PATIENT
  Age: 70 Year
  Sex: Female

DRUGS (12)
  1. LITFULO [Suspect]
     Active Substance: RITLECITINIB TOSYLATE
     Indication: Alopecia
     Dosage: 50 MG
  2. OMEPRAZOLE [Concomitant]
     Active Substance: OMEPRAZOLE
  3. FOLIC ACID [Concomitant]
     Active Substance: FOLIC ACID
  4. BETAMETHASONE [Concomitant]
     Active Substance: BETAMETHASONE
  5. TRETINOIN [Concomitant]
     Active Substance: TRETINOIN
  6. KENALOG [Concomitant]
     Active Substance: TRIAMCINOLONE ACETONIDE
  7. MAGNESIUM [Concomitant]
     Active Substance: MAGNESIUM
  8. BENZONATATE [Concomitant]
     Active Substance: BENZONATATE
  9. BIOTIN [Concomitant]
     Active Substance: BIOTIN
  10. CALCIUM [Concomitant]
     Active Substance: CALCIUM
  11. MELATONIN [Concomitant]
     Active Substance: MELATONIN
  12. VITAMIN C [Concomitant]
     Active Substance: ASCORBIC ACID

REACTIONS (4)
  - Oropharyngeal discomfort [Unknown]
  - Product storage error [Unknown]
  - Poor quality product administered [Unknown]
  - Dyspepsia [Unknown]

NARRATIVE: CASE EVENT DATE: 20240903
